FAERS Safety Report 4277840-5 (Version None)
Quarter: 2004Q1

REPORT INFORMATION
  Report Type: 
  Country: None (occurrence: None)
  Receive Date: 20040121
  Receipt Date: 20031010
  Transmission Date: 20041129
  Serious: Yes (Hospitalization, Other)
  Sender: FDA-Public Use
  Company Number: RB-192-2003

PATIENT
  Age: 31 Year
  Sex: Male

DRUGS (1)
  1. BUPRENORPHINE HYDROCHLORIDE [Suspect]
     Indication: DRUG DEPENDENCE
     Dosage: IV
     Route: 042

REACTIONS (9)
  - DRUG ABUSER [None]
  - HEPATITIS C POSITIVE [None]
  - HEPATOMEGALY [None]
  - LYMPHADENOPATHY [None]
  - PAIN IN EXTREMITY [None]
  - PERIPHERAL ISCHAEMIA [None]
  - PERIPHERAL REVASCULARISATION [None]
  - RESTLESSNESS [None]
  - THEFT [None]
